FAERS Safety Report 4519417-X (Version None)
Quarter: 2004Q4

REPORT INFORMATION
  Report Type: 
  Country: None (occurrence: None)
  Receive Date: 20041202
  Receipt Date: 20041122
  Transmission Date: 20050328
  Serious: Yes (Hospitalization)
  Sender: FDA-Public Use
  Company Number: 200413090GDS

PATIENT
  Age: 91 Year
  Sex: Female

DRUGS (8)
  1. ASPIRIN [Suspect]
     Indication: PROPHYLAXIS
     Dosage: 100 MG, QD, ORAL
     Route: 048
     Dates: end: 20041028
  2. NAPROXEN [Suspect]
     Indication: ARTHRALGIA
     Dosage: 500 MG, QD, ORAL
     Route: 048
     Dates: start: 20041021, end: 20041027
  3. TORADOL [Suspect]
     Indication: ARTHRALGIA
     Dosage: SEE IMAGE
     Route: 030
     Dates: start: 20041025
  4. TORADOL [Suspect]
     Indication: ARTHRALGIA
     Dosage: SEE IMAGE
     Route: 030
     Dates: start: 20041028
  5. NITRODERM [Concomitant]
  6. TAREG [Concomitant]
  7. LASIX [Concomitant]
  8. ZYLORIC [Concomitant]

REACTIONS (5)
  - JOINT DISLOCATION [None]
  - LEUKOCYTOSIS [None]
  - NORMOCHROMIC NORMOCYTIC ANAEMIA [None]
  - PYREXIA [None]
  - RENAL FAILURE [None]
